FAERS Safety Report 5371576-5 (Version None)
Quarter: 2007Q2

REPORT INFORMATION
  Report Type: 
  Country: None (occurrence: None)
  Receive Date: 20070625
  Receipt Date: 20070613
  Transmission Date: 20071010
  Serious: Yes (Hospitalization, Other)
  Sender: FDA-Public Use
  Company Number: 2007SP008495

PATIENT
  Age: 48 Year
  Sex: Female
  Weight: 72.5755 kg

DRUGS (4)
  1. PEG-INTRON [Suspect]
     Indication: HEPATITIS C
     Dates: start: 20050601, end: 20051201
  2. PEG-INTRON [Suspect]
     Indication: HEPATITIS C
     Dates: start: 20070313
  3. REBETOL [Suspect]
     Indication: HEPATITIS C
     Dosage: PO
     Route: 048
     Dates: start: 20050601, end: 20051201
  4. REBETOL [Suspect]
     Indication: HEPATITIS C
     Dosage: PO
     Route: 048
     Dates: start: 20070313

REACTIONS (26)
  - ALOPECIA [None]
  - ANAEMIA [None]
  - ARTHRALGIA [None]
  - ASTHENIA [None]
  - BACK PAIN [None]
  - BLOOD PRESSURE DECREASED [None]
  - BURNS SECOND DEGREE [None]
  - DECREASED APPETITE [None]
  - DENTAL CARIES [None]
  - FALL [None]
  - FEELING HOT [None]
  - GASTROINTESTINAL MOTILITY DISORDER [None]
  - GINGIVITIS [None]
  - INJECTION SITE DISCOLOURATION [None]
  - MUSCLE ATROPHY [None]
  - MUSCULOSKELETAL PAIN [None]
  - NAUSEA [None]
  - NODULE [None]
  - RADIATION SKIN INJURY [None]
  - RECTAL HAEMORRHAGE [None]
  - RED BLOOD CELL COUNT DECREASED [None]
  - SKIN LACERATION [None]
  - TOOTH INFECTION [None]
  - UPPER LIMB FRACTURE [None]
  - WEIGHT DECREASED [None]
  - WHITE BLOOD CELL COUNT DECREASED [None]
